FAERS Safety Report 12782972 (Version 3)
Quarter: 2016Q4

REPORT INFORMATION
  Report Type: Spontaneous
  Country: US (occurrence: US)
  Receive Date: 20160927
  Receipt Date: 20161121
  Transmission Date: 20170207
  Serious: No
  Sender: FDA-Public Use
  Company Number: US-PFIZER INC-2016444898

PATIENT
  Age: 34 Year
  Sex: Female

DRUGS (14)
  1. CELEXA [Concomitant]
     Active Substance: CITALOPRAM HYDROBROMIDE
     Indication: DEPRESSION
     Dosage: 20 MG, UNK
  2. SULINDAC. [Concomitant]
     Active Substance: SULINDAC
     Dosage: UNK
  3. CITALOPRAM [Concomitant]
     Active Substance: CITALOPRAM HYDROBROMIDE
     Dosage: 40 MG, UNK
  4. SYNTHROID [Concomitant]
     Active Substance: LEVOTHYROXINE SODIUM
     Indication: HYPERTHYROIDISM
     Dosage: 50 UG, UNK
  5. ASA [Concomitant]
     Active Substance: ASPIRIN
     Dosage: 81 MG, UNK
  6. CYCLOBENZAPRINE [Concomitant]
     Active Substance: CYCLOBENZAPRINE
     Dosage: UNK
  7. SUTENT [Suspect]
     Active Substance: SUNITINIB MALATE
     Indication: NEOPLASM MALIGNANT
     Dosage: 1 DF, CYCLIC (4 WEEKS ON AND 2 WEEKS OFF) (ONE CAPSULE DAILY)
     Route: 048
     Dates: start: 20160901
  8. TAMOXIFEN CITRATE. [Concomitant]
     Active Substance: TAMOXIFEN CITRATE
     Indication: DESMOID TUMOUR
     Dosage: )
  9. TAMOXIFEN [Concomitant]
     Active Substance: TAMOXIFEN
     Indication: DESMOID TUMOUR
     Dosage: 20 MG, 2X/DAY, (FOR YEARS)
  10. NOLVADEX [Concomitant]
     Active Substance: TAMOXIFEN CITRATE
     Dosage: UNK
  11. FLEXERIL [Concomitant]
     Active Substance: CYCLOBENZAPRINE HYDROCHLORIDE
     Indication: BACK DISORDER
     Dosage: 5 MG, 1X/DAY, (QHS), (FOR YEARS)
  12. TRAZODONE [Concomitant]
     Active Substance: TRAZODONE HYDROCHLORIDE
     Dosage: 75 MG, UNK
  13. TUMS [Concomitant]
     Active Substance: CALCIUM CARBONATE
     Dosage: UNK UNK, DAILY (3 TO 6 TUMS A DAY)
  14. DESYREL [Concomitant]
     Active Substance: TRAZODONE HYDROCHLORIDE
     Indication: SLEEP DISORDER
     Dosage: 75 MG, 1X/DAY, (QHS)

REACTIONS (10)
  - Dysphagia [Unknown]
  - Dyspepsia [Unknown]
  - Visual impairment [Recovered/Resolved]
  - Blood thyroid stimulating hormone increased [Unknown]
  - Diplopia [Recovered/Resolved]
  - Dehydration [Unknown]
  - Contusion [Unknown]
  - Nausea [Unknown]
  - Hair colour changes [Unknown]
  - Dysgeusia [Unknown]

NARRATIVE: CASE EVENT DATE: 20160919
